FAERS Safety Report 25384066 (Version 1)
Quarter: 2025Q2

REPORT INFORMATION
  Report Type: Spontaneous
  Country: IL (occurrence: IL)
  Receive Date: 20250602
  Receipt Date: 20250602
  Transmission Date: 20250717
  Serious: Yes (Other)
  Sender: ABBVIE
  Company Number: IL-ABBVIE-6303130

PATIENT
  Age: 22 Year
  Sex: Male

DRUGS (2)
  1. HUMIRA [Suspect]
     Active Substance: ADALIMUMAB
     Indication: Crohn^s disease
     Route: 058
     Dates: start: 201810, end: 2019
  2. HUMIRA [Suspect]
     Active Substance: ADALIMUMAB
     Route: 058
     Dates: start: 201906, end: 202407

REACTIONS (8)
  - Anal erosion [Unknown]
  - Drug level decreased [Unknown]
  - Intestinal ulcer [Unknown]
  - Faecal calprotectin increased [Unknown]
  - Drug level abnormal [Unknown]
  - Anal fissure [Unknown]
  - Hyperaemia [Unknown]
  - Large intestine erosion [Unknown]

NARRATIVE: CASE EVENT DATE: 20190601
